FAERS Safety Report 7627137-8 (Version None)
Quarter: 2011Q3

REPORT INFORMATION
  Report Type: 
  Country: None (occurrence: None)
  Receive Date: 20110714
  Receipt Date: 20110629
  Transmission Date: 20111222
  Serious: Yes (Hospitalization)
  Sender: FDA-Public Use
  Company Number: 2011-283

PATIENT
  Sex: Male

DRUGS (10)
  1. LAXOBERAL (SODIUM PICOSULFATE) [Concomitant]
  2. IBUPROFEN [Suspect]
     Dosage: ORAL
     Route: 048
  3. PALLADONE [Concomitant]
  4. PRIALT [Suspect]
     Dosage: SEE IMAGE
     Route: 037
     Dates: start: 20090101, end: 20090903
  5. PRIALT [Suspect]
     Dosage: SEE IMAGE
     Route: 037
     Dates: start: 20100101, end: 20100101
  6. PRIALT [Suspect]
     Dosage: SEE IMAGE
     Route: 037
     Dates: start: 20090601
  7. PRIALT [Suspect]
     Dosage: SEE IMAGE
     Route: 037
     Dates: end: 20090801
  8. PRIALT [Suspect]
     Dosage: SEE IMAGE
     Route: 037
     Dates: start: 20090828, end: 20090101
  9. PRIALT [Suspect]
     Dosage: SEE IMAGE
     Route: 037
     Dates: start: 20091207, end: 20100101
  10. PRIALT [Suspect]
     Dosage: SEE IMAGE
     Route: 037
     Dates: start: 20090101, end: 20090101

REACTIONS (3)
  - PSYCHOTIC DISORDER [None]
  - CONFUSIONAL STATE [None]
  - GASTROINTESTINAL HAEMORRHAGE [None]
